FAERS Safety Report 7024330-2 (Version None)
Quarter: 2010Q4

REPORT INFORMATION
  Report Type: 
  Country: None (occurrence: None)
  Receive Date: 20101001
  Receipt Date: 20100923
  Transmission Date: 20110411
  Serious: Yes (Hospitalization)
  Sender: FDA-Public Use
  Company Number: DE-ABBOTT-10P-062-0642081-00

PATIENT
  Sex: Male
  Weight: 84 kg

DRUGS (7)
  1. HUMIRA [Suspect]
     Indication: PSORIATIC ARTHROPATHY
     Route: 058
     Dates: start: 20050101, end: 20100206
  2. HUMIRA [Suspect]
     Route: 058
     Dates: start: 20100301
  3. CEFUROXIME [Concomitant]
     Indication: ANTIBIOTIC PROPHYLAXIS
     Dates: start: 20100201, end: 20100201
  4. EMBOLEX [Concomitant]
     Indication: THROMBOSIS PROPHYLAXIS
     Dates: start: 20100201
  5. DIOVAN [Concomitant]
     Indication: HYPERTENSION
     Route: 048
     Dates: start: 20100201
  6. RAMIPRIL [Concomitant]
     Indication: HYPERTENSION
     Route: 048
     Dates: start: 20100201
  7. IDEOS KT [Concomitant]
     Indication: OSTEOPOROSIS
     Route: 048
     Dates: start: 20100201

REACTIONS (1)
  - NEPHROLITHIASIS [None]
